FAERS Safety Report 12985907 (Version 1)
Quarter: 2016Q4

REPORT INFORMATION
  Report Type: Spontaneous
  Country: US (occurrence: US)
  Receive Date: 20161130
  Receipt Date: 20161130
  Transmission Date: 20170207
  Serious: Yes (Other)
  Sender: FDA-Public Use
  Company Number: US-CLINIGEN GROUP PLC/ CLINIGEN HEALTHCARE LTD-E2B_00000459

PATIENT
  Age: 47 Year
  Sex: Male
  Weight: 94.3 kg

DRUGS (18)
  1. ALOXI [Concomitant]
     Active Substance: PALONOSETRON HYDROCHLORIDE
     Indication: NAUSEA
     Route: 042
     Dates: start: 20060711, end: 20060807
  2. LORAZEPAM. [Concomitant]
     Active Substance: LORAZEPAM
     Indication: NAUSEA
     Dosage: 1 PRIOR TO TREATMENT
     Route: 048
     Dates: start: 20060711, end: 20060829
  3. MUPIROCIN. [Concomitant]
     Active Substance: MUPIROCIN
     Route: 061
  4. MUPIROCIN CALCIUM. [Concomitant]
     Active Substance: MUPIROCIN CALCIUM
     Route: 061
  5. LIDOCAINE. [Concomitant]
     Active Substance: LIDOCAINE
  6. ETHYOL [Suspect]
     Active Substance: AMIFOSTINE
     Indication: DRUG TOXICITY PROPHYLAXIS
     Route: 058
     Dates: start: 20060711, end: 20060721
  7. CETAPHIL [Concomitant]
     Active Substance: AVOBENZONE\OCTOCRYLENE\TRICLOSAN
     Route: 061
  8. RADIATION THERAPY [Concomitant]
     Active Substance: RADIATION THERAPY
     Dates: start: 20060713, end: 20060829
  9. LORAZEPAM. [Concomitant]
     Active Substance: LORAZEPAM
     Indication: ANXIETY
     Dosage: 1 PRIOR TO TREATMENT
     Route: 048
     Dates: start: 20060711, end: 20060829
  10. PROCHLORPERAZINE. [Concomitant]
     Active Substance: PROCHLORPERAZINE
     Dosage: 1 TO 2 TABLETS AS NEEDED
     Route: 048
  11. GUAIFENESIN. [Concomitant]
     Active Substance: GUAIFENESIN
     Route: 048
  12. NAPROXEN. [Concomitant]
     Active Substance: NAPROXEN
     Indication: OROPHARYNGEAL PAIN
     Route: 048
  13. ACETAMINOPHEN. [Concomitant]
     Active Substance: ACETAMINOPHEN
     Indication: PAIN
     Dosage: EVERY 4 TO 6 HOURS
     Route: 048
  14. PSEUDOEPHEDRINE [Concomitant]
     Active Substance: PSEUDOEPHEDRINE
     Route: 048
  15. ETHYOL [Suspect]
     Active Substance: AMIFOSTINE
     Route: 058
     Dates: start: 20060724, end: 20060810
  16. HYDROCORTISONE CREAM [Concomitant]
     Active Substance: HYDROCORTISONE
     Indication: INFLAMMATION
     Route: 061
     Dates: start: 20060713, end: 20060827
  17. CETIRIZINE HCL [Concomitant]
     Active Substance: CETIRIZINE HYDROCHLORIDE
     Indication: INFLAMMATION
     Dosage: 2 TEASPOONS (1MG/ML)
     Route: 048
     Dates: start: 20060711, end: 20060810
  18. NYSTATIN. [Concomitant]
     Active Substance: NYSTATIN
     Indication: MUCOSAL INFLAMMATION
     Route: 048
     Dates: start: 20060810, end: 20060817

REACTIONS (20)
  - Retching [Unknown]
  - Feeling cold [Unknown]
  - Fatigue [Unknown]
  - Haematochezia [Unknown]
  - Insomnia [Unknown]
  - Dry mouth [Unknown]
  - Pruritus [Unknown]
  - Erythema [Unknown]
  - Chills [Recovered/Resolved]
  - Skin hyperpigmentation [Unknown]
  - Anxiety [Unknown]
  - Pyrexia [Recovered/Resolved]
  - Throat tightness [Unknown]
  - Oral candidiasis [Unknown]
  - Injection site erythema [Recovered/Resolved]
  - Injection site pruritus [Unknown]
  - Oropharyngeal pain [Unknown]
  - Malaise [Unknown]
  - Rash macular [Recovered/Resolved]
  - Hypogeusia [Unknown]

NARRATIVE: CASE EVENT DATE: 20060724
